FAERS Safety Report 24023677 (Version 1)
Quarter: 2024Q2

REPORT INFORMATION
  Report Type: Spontaneous
  Country: JP (occurrence: JP)
  Receive Date: 20240627
  Receipt Date: 20240627
  Transmission Date: 20240716
  Serious: Yes (Hospitalization, Other)
  Sender: FDA-Public Use
  Company Number: JP-NOVOPROD-1245083

PATIENT
  Age: 50 Year
  Sex: Male

DRUGS (6)
  1. INSULIN NOS [Concomitant]
     Active Substance: INSULIN NOS
     Dosage: VARY THE TOTAL DAILY DOSE (TDD) OF INSULIN THROUGHOUT THE WEEK
     Route: 058
  2. INSULIN NOS [Concomitant]
     Active Substance: INSULIN NOS
     Indication: Type 1 diabetes mellitus
     Dosage: UNK
     Route: 058
  3. SOMATROPIN [Concomitant]
     Active Substance: SOMATROPIN
     Indication: Growth hormone deficiency
     Dosage: 0.7 MG, QD
  4. SOGROYA [Suspect]
     Active Substance: SOMAPACITAN-BECO
     Dosage: 2 MG, QW
  5. SOGROYA [Suspect]
     Active Substance: SOMAPACITAN-BECO
     Dosage: 3.5 MG, QW
  6. SOGROYA [Suspect]
     Active Substance: SOMAPACITAN-BECO
     Indication: Growth hormone deficiency
     Dosage: 1.5 MG, QW

REACTIONS (1)
  - Hypoglycaemia [Recovered/Resolved]
